FAERS Safety Report 16336389 (Version 2)
Quarter: 2019Q2

REPORT INFORMATION
  Report Type: Spontaneous
  Country: NL (occurrence: NL)
  Receive Date: 20190521
  Receipt Date: 20190528
  Transmission Date: 20190711
  Serious: Yes (Other)
  Sender: FDA-Public Use
  Company Number: NL-ACCORD-128597

PATIENT
  Age: 46 Year
  Sex: Female
  Weight: 73 kg

DRUGS (5)
  1. CELECOXIB. [Concomitant]
     Active Substance: CELECOXIB
  2. FOLIUMZUUR [Concomitant]
     Active Substance: FOLIC ACID
  3. OMEPRAZOLE. [Concomitant]
     Active Substance: OMEPRAZOLE
  4. METHOTREXATE. [Suspect]
     Active Substance: METHOTREXATE
     Indication: RHEUMATOID ARTHRITIS
     Dosage: INFUSION
     Dates: start: 20181030, end: 20190204
  5. PREDNISONE. [Concomitant]
     Active Substance: PREDNISONE
     Dates: start: 20181030

REACTIONS (5)
  - Muscle tightness [Recovered/Resolved]
  - Chest discomfort [Recovered/Resolved]
  - Loss of consciousness [Recovered/Resolved]
  - Arrhythmia [Recovered/Resolved]
  - Speech disorder [Recovered/Resolved]

NARRATIVE: CASE EVENT DATE: 20181107
